FAERS Safety Report 7957297-0 (Version None)
Quarter: 2011Q4

REPORT INFORMATION
  Report Type: 
  Country: None (occurrence: None)
  Receive Date: 20111205
  Receipt Date: 20111125
  Transmission Date: 20120403
  Serious: Yes (Hospitalization, Other)
  Sender: FDA-Public Use
  Company Number: US-ASTRAZENECA-2010SE57907

PATIENT
  Age: 58 Year
  Sex: Female

DRUGS (2)
  1. NEXIUM [Suspect]
     Route: 048
  2. PRILOSEC [Suspect]
     Route: 048

REACTIONS (16)
  - HAEMOPTYSIS [None]
  - CONVULSION [None]
  - ABDOMINAL DISCOMFORT [None]
  - MUSCULAR WEAKNESS [None]
  - CATARACT [None]
  - DENTAL CARIES [None]
  - GRAND MAL CONVULSION [None]
  - LUNG NEOPLASM MALIGNANT [None]
  - SKIN CANCER [None]
  - NEOPLASM MALIGNANT [None]
  - PULMONARY FIBROSIS [None]
  - OESOPHAGEAL CARCINOMA [None]
  - BONE NEOPLASM MALIGNANT [None]
  - TOOTH ABSCESS [None]
  - DRUG DOSE OMISSION [None]
  - BRONCHITIS CHRONIC [None]
